FAERS Safety Report 5066472-7 (Version None)
Quarter: 2006Q3

REPORT INFORMATION
  Report Type: 
  Country: None (occurrence: None)
  Receive Date: 20060728
  Receipt Date: 20060720
  Transmission Date: 20061208
  Serious: Yes (Hospitalization)
  Sender: FDA-Public Use
  Company Number: 200614649BWH

PATIENT
  Age: 78 Year
  Sex: Male

DRUGS (5)
  1. NEXAVAR [Suspect]
     Indication: CLEAR CELL CARCINOMA OF THE KIDNEY
     Dosage: 400 MG, BID, ORAL
     Route: 048
     Dates: start: 20051001
  2. NEXAVAR [Suspect]
     Indication: RENAL CANCER METASTATIC
     Dosage: 400 MG, BID, ORAL
     Route: 048
     Dates: start: 20051001
  3. ZOMETA [Concomitant]
  4. DARVOCET [Concomitant]
  5. OXYCONTIN [Concomitant]

REACTIONS (2)
  - DIARRHOEA [None]
  - FEMUR FRACTURE [None]
